FAERS Safety Report 8986367 (Version 1)
Quarter: 2012Q4

REPORT INFORMATION
  Report Type: Spontaneous
  Country: US (occurrence: None)
  Receive Date: 20121213
  Receipt Date: 20121213
  Transmission Date: 20130627
  Serious: Yes (Other)
  Sender: FDA-Public Use
  Company Number: 89477

PATIENT
  Age: 82 Year
  Sex: Female
  Weight: 68.04 kg

DRUGS (6)
  1. CAMPHOR (SYNTHETIC), MENTHOL, AND METHYL SALICYLATE [Suspect]
     Route: 061
     Dates: start: 20121113, end: 20121127
  2. ATENOLOL [Concomitant]
  3. AMLODIPINE [Concomitant]
  4. SIMVASTATIN [Concomitant]
  5. VICODEN [Concomitant]
  6. ALEVE [Concomitant]

REACTIONS (3)
  - Skin infection [None]
  - Erythema [None]
  - Oedema peripheral [None]
